FAERS Safety Report 20826507 (Version 1)
Quarter: 2022Q2

REPORT INFORMATION
  Report Type: Spontaneous
  Country: US (occurrence: US)
  Receive Date: 20220513
  Receipt Date: 20220513
  Transmission Date: 20220721
  Serious: No
  Sender: FDA-Public Use
  Company Number: US-PFIZER INC-202200678194

PATIENT
  Age: 49 Year
  Sex: Male

DRUGS (3)
  1. PAXLOVID [Suspect]
     Active Substance: NIRMATRELVIR\RITONAVIR
     Indication: COVID-19 treatment
     Dosage: UNK
     Dates: start: 20220425, end: 20220429
  2. NATURE^S BOUNTY D3 [Concomitant]
     Dates: start: 20210101, end: 20220508
  3. ENALAPRIL [Concomitant]
     Active Substance: ENALAPRIL
     Dates: start: 20190320, end: 20220508

REACTIONS (2)
  - COVID-19 [Recovering/Resolving]
  - Disease recurrence [Recovering/Resolving]

NARRATIVE: CASE EVENT DATE: 20220506
